FAERS Safety Report 7103170-X (Version None)
Quarter: 2010Q4

REPORT INFORMATION
  Report Type: 
  Country: None (occurrence: None)
  Receive Date: 20101115
  Receipt Date: 20101102
  Transmission Date: 20110411
  Serious: Yes (Hospitalization)
  Sender: FDA-Public Use
  Company Number: US-MERCK-1011USA00330

PATIENT
  Age: 48 Year
  Sex: Male

DRUGS (5)
  1. ZOCOR [Suspect]
     Indication: BLOOD CHOLESTEROL INCREASED
     Route: 048
     Dates: start: 20070101
  2. ZOCOR [Suspect]
     Route: 048
  3. ZOCOR [Suspect]
     Route: 048
  4. ZETIA [Concomitant]
     Route: 048
  5. CALAN [Concomitant]
     Route: 065

REACTIONS (4)
  - ASTHENIA [None]
  - DYSSTASIA [None]
  - FALL [None]
  - FATIGUE [None]
